FAERS Safety Report 12746562 (Version 3)
Quarter: 2016Q4

REPORT INFORMATION
  Report Type: Spontaneous
  Country: DE (occurrence: DE)
  Receive Date: 20160915
  Receipt Date: 20161129
  Transmission Date: 20170207
  Serious: Yes (Death, Life-Threatening)
  Sender: FDA-Public Use
  Company Number: DE-B.I. PHARMACEUTICALS,INC./RIDGEFIELD-2016-BI-59767DE

PATIENT
  Age: 76 Year
  Sex: Female

DRUGS (8)
  1. TORASEMID [Concomitant]
     Active Substance: TORSEMIDE
     Indication: RENAL FAILURE
     Route: 048
  2. METOPROLOL. [Concomitant]
     Active Substance: METOPROLOL
     Indication: HYPERTENSION
     Route: 048
  3. PANTOPRAZOL [Concomitant]
     Active Substance: PANTOPRAZOLE SODIUM
     Indication: GASTROOESOPHAGEAL REFLUX DISEASE
     Route: 048
  4. RAMIPRIL. [Concomitant]
     Active Substance: RAMIPRIL
     Indication: CARDIAC FAILURE
     Route: 048
  5. METOPROLOL. [Concomitant]
     Active Substance: METOPROLOL
     Indication: CARDIAC FAILURE
     Route: 048
  6. TORASEMID [Concomitant]
     Active Substance: TORSEMIDE
     Indication: CARDIAC FAILURE
  7. RAMIPRIL. [Concomitant]
     Active Substance: RAMIPRIL
     Indication: HYPERTENSION
  8. PRADAXA [Suspect]
     Active Substance: DABIGATRAN ETEXILATE MESYLATE
     Indication: ATRIAL FIBRILLATION
     Route: 048
     Dates: start: 201606, end: 20160828

REACTIONS (11)
  - Shock haemorrhagic [Fatal]
  - Hypovolaemia [Unknown]
  - Acute myocardial infarction [Unknown]
  - Drug effect increased [Unknown]
  - Haemorrhagic anaemia [Unknown]
  - Drug level increased [Unknown]
  - Metabolic acidosis [Unknown]
  - Vaginal haemorrhage [Unknown]
  - Acute kidney injury [Unknown]
  - Cardiogenic shock [Fatal]
  - Anuria [Unknown]

NARRATIVE: CASE EVENT DATE: 20160828
